FAERS Safety Report 8172726-8 (Version None)
Quarter: 2012Q1

REPORT INFORMATION
  Report Type: 
  Country: None (occurrence: None)
  Receive Date: 20120223
  Receipt Date: 20120208
  Transmission Date: 20120608
  Serious: Yes (Other)
  Sender: FDA-Public Use
  Company Number: JP-20120007

PATIENT
  Age: 71 Year
  Sex: Male

DRUGS (3)
  1. 10ML (LIPIODOL ULTRA FLUIDE) (ETHIODIZED OIL) [Suspect]
     Indication: THERAPEUTIC EMBOLISATION
     Dosage: 2 ML (2 ML,1 IN 1 D) INTRA-ARTERIAL
     Route: 013
     Dates: start: 20071115, end: 20071115
  2. EPIRUBICIN HYDROCHLORIDE [Suspect]
     Dosage: 20 MG (20 MG,1 IN 1 D) INTRA-ARTERIAL
     Route: 013
     Dates: start: 20071115, end: 20071115
  3. MITOMYCIN [Suspect]
     Dosage: 4 MG (4 MG,1 IN 1 D) INTRA-ARTERIAL
     Route: 013
     Dates: start: 20071115, end: 20071115

REACTIONS (3)
  - OFF LABEL USE [None]
  - ERYTHEMA [None]
  - SKIN ULCER [None]
